FAERS Safety Report 21381827 (Version 1)
Quarter: 2022Q3

REPORT INFORMATION
  Report Type: Spontaneous
  Country: GB (occurrence: GB)
  Receive Date: 20220927
  Receipt Date: 20220927
  Transmission Date: 20221026
  Serious: Yes (Life-Threatening, Hospitalization, Other)
  Sender: FDA-Public Use
  Company Number: GB-ALLERGAN-2231353US

PATIENT
  Sex: Female

DRUGS (3)
  1. BOTOX [Suspect]
     Active Substance: ONABOTULINUMTOXINA
     Indication: Skin wrinkling
     Dosage: 24 UNITS, SINGLE
     Dates: start: 20220811, end: 20220811
  2. BOTOX [Suspect]
     Active Substance: ONABOTULINUMTOXINA
     Indication: Skin wrinkling
     Dosage: 20 UNITS, SINGLE
     Dates: start: 20220811, end: 20220811
  3. BOTOX [Suspect]
     Active Substance: ONABOTULINUMTOXINA
     Dosage: UNK, SINGLE

REACTIONS (8)
  - Loss of consciousness [Unknown]
  - Botulism [Unknown]
  - Palpitations [Unknown]
  - Hypoaesthesia oral [Unknown]
  - Dyspnoea [Unknown]
  - Hypoaesthesia [Unknown]
  - Product preparation error [Unknown]
  - Nervousness [Unknown]

NARRATIVE: CASE EVENT DATE: 20220801
